FAERS Safety Report 5798139-1 (Version None)
Quarter: 2008Q2

REPORT INFORMATION
  Report Type: 
  Country: None (occurrence: None)
  Receive Date: 20080620
  Receipt Date: 20070910
  Transmission Date: 20081010
  Serious: Yes (Other)
  Sender: FDA-Public Use
  Company Number: 2007BH007626

PATIENT

DRUGS (1)
  1. OXYTOCIN [Suspect]
     Indication: DRUG EXPOSURE DURING PREGNANCY
     Dosage: TRPL
     Dates: start: 20070809, end: 20070809

REACTIONS (1)
  - FOETAL HEART RATE DECELERATION [None]
